FAERS Safety Report 12219819 (Version 1)
Quarter: 2016Q1

REPORT INFORMATION
  Report Type: Spontaneous
  Country: FR (occurrence: FR)
  Receive Date: 20160330
  Receipt Date: 20160330
  Transmission Date: 20160526
  Serious: Yes (Hospitalization, Other)
  Sender: FDA-Public Use
  Company Number: FR-HOSPIRA-3219162

PATIENT
  Age: 70 Year
  Sex: Male
  Weight: 68 kg

DRUGS (1)
  1. CARBOPLATIN HOSPIRA [Suspect]
     Active Substance: CARBOPLATIN
     Indication: ADENOCARCINOMA
     Route: 041
     Dates: start: 20160209, end: 20160209

REACTIONS (5)
  - Erythema [Unknown]
  - Bradycardia [Recovered/Resolved]
  - Dyspnoea [Unknown]
  - Blood pressure increased [Unknown]
  - Hypersensitivity [Unknown]

NARRATIVE: CASE EVENT DATE: 20160209
